FAERS Safety Report 20648319 (Version 1)
Quarter: 2022Q1

REPORT INFORMATION
  Report Type: Spontaneous
  Country: US (occurrence: None)
  Receive Date: 20220328
  Receipt Date: 20220328
  Transmission Date: 20220424
  Serious: No
  Sender: FDA-Public Use
  Company Number: None

PATIENT

DRUGS (2)
  1. TIVICAY [Suspect]
     Active Substance: DOLUTEGRAVIR SODIUM
     Indication: Injury associated with device
     Dosage: FREQUENCY : DAILY;?
     Route: 048
     Dates: start: 20220307, end: 20220309
  2. TRUVADA [Suspect]
     Active Substance: EMTRICITABINE\TENOFOVIR DISOPROXIL FUMARATE
     Indication: Injury associated with device
     Dosage: FREQUENCY : DAILY;?
     Route: 048
     Dates: start: 20220307, end: 20220309

REACTIONS (2)
  - Abdominal pain [None]
  - Dysuria [None]

NARRATIVE: CASE EVENT DATE: 20220309
